FAERS Safety Report 16981180 (Version 2)
Quarter: 2019Q4

REPORT INFORMATION
  Report Type: Report from Study
  Country: IE (occurrence: IE)
  Receive Date: 20191031
  Receipt Date: 20191112
  Transmission Date: 20200122
  Serious: Yes (Death, Other)
  Sender: FDA-Public Use
  Company Number: IE-ACTELION-A-NJ2019-197392

PATIENT
  Age: 61 Year
  Sex: Female

DRUGS (1)
  1. VENTAVIS [Suspect]
     Active Substance: ILOPROST
     Indication: PULMONARY ARTERIAL HYPERTENSION
     Dosage: 10 MCG/ML, 1 ML 6 TIMES PER DAY
     Route: 055
     Dates: start: 20161014, end: 20191019

REACTIONS (2)
  - Death [Fatal]
  - Lung transplant rejection [Unknown]

NARRATIVE: CASE EVENT DATE: 20191019
